FAERS Safety Report 21476903 (Version 2)
Quarter: 2024Q2

REPORT INFORMATION
  Report Type: Report from Study
  Country: US (occurrence: US)
  Receive Date: 20221019
  Receipt Date: 20240417
  Transmission Date: 20240716
  Serious: No
  Sender: FDA-Public Use
  Company Number: US-ABBVIE-4164234

PATIENT
  Sex: Male

DRUGS (1)
  1. IMBRUVICA [Suspect]
     Active Substance: IBRUTINIB
     Indication: Chronic lymphocytic leukaemia
     Route: 048

REACTIONS (5)
  - Musculoskeletal stiffness [Unknown]
  - Fluid retention [Unknown]
  - Weight decreased [Unknown]
  - Asthenia [Unknown]
  - Anal incontinence [Recovering/Resolving]

NARRATIVE: CASE EVENT DATE: 20210101
